FAERS Safety Report 14216556 (Version 3)
Quarter: 2017Q4

REPORT INFORMATION
  Report Type: Spontaneous
  Country: US (occurrence: US)
  Receive Date: 20171122
  Receipt Date: 20171227
  Transmission Date: 20180321
  Serious: Yes (Other)
  Sender: FDA-Public Use
  Company Number: US-IMPAX LABORATORIES, INC-2017-IPXL-03236

PATIENT
  Sex: Male

DRUGS (1)
  1. RYTARY [Suspect]
     Active Substance: CARBIDOPA\LEVODOPA
     Indication: PARKINSON^S DISEASE
     Dosage: 48.75/195MG, 2 DF, 4 /DAY
     Route: 048
     Dates: start: 2016

REACTIONS (3)
  - Tremor [Recovering/Resolving]
  - Therapeutic response shortened [Recovering/Resolving]
  - Cervical spinal stenosis [Recovered/Resolved]
